FAERS Safety Report 9158931 (Version 2)
Quarter: 2013Q3

REPORT INFORMATION
  Report Type: Report from Study
  Country: DE (occurrence: DE)
  Receive Date: 20130313
  Receipt Date: 20130711
  Transmission Date: 20140515
  Serious: Yes (Hospitalization)
  Sender: FDA-Public Use
  Company Number: DE-ABBOTT-13P-062-1058861-00

PATIENT
  Sex: Male

DRUGS (11)
  1. HUMIRA [Suspect]
     Indication: PSORIASIS
     Route: 058
     Dates: end: 2013
  2. HUMIRA [Suspect]
     Route: 058
     Dates: start: 2013
  3. VERAPAMIL [Suspect]
     Indication: PRODUCT USED FOR UNKNOWN INDICATION
     Dates: start: 201111
  4. ALLOPURINOL [Suspect]
     Indication: PRODUCT USED FOR UNKNOWN INDICATION
     Dates: start: 201111
  5. SIMVASTATIN [Suspect]
     Indication: PRODUCT USED FOR UNKNOWN INDICATION
     Dates: start: 201111
  6. LEVOTHYROXINE [Suspect]
     Indication: PRODUCT USED FOR UNKNOWN INDICATION
     Dates: start: 201111
  7. CODIOVAN [Suspect]
     Indication: PRODUCT USED FOR UNKNOWN INDICATION
     Dates: start: 201111
  8. DIOVAN [Suspect]
     Indication: PRODUCT USED FOR UNKNOWN INDICATION
     Dates: start: 201111
  9. ACETYLSALICYLIC ACID [Suspect]
     Indication: PRODUCT USED FOR UNKNOWN INDICATION
     Dates: start: 201111
  10. UNKNOWN HEART MEDICATION [Concomitant]
     Indication: PRODUCT USED FOR UNKNOWN INDICATION
  11. ANALGESICS [Concomitant]
     Indication: PRODUCT USED FOR UNKNOWN INDICATION

REACTIONS (5)
  - Weight decreased [Recovered/Resolved]
  - General physical health deterioration [Recovered/Resolved]
  - Liver function test abnormal [Recovered/Resolved]
  - Gastritis [Recovered/Resolved]
  - Anaemia [Recovered/Resolved]
